FAERS Safety Report 5791144-0 (Version None)
Quarter: 2008Q2

REPORT INFORMATION
  Report Type: 
  Country: None (occurrence: None)
  Receive Date: 20080626
  Receipt Date: 20080228
  Transmission Date: 20081010
  Serious: No
  Sender: FDA-Public Use
  Company Number: A0712290A

PATIENT
  Age: 63 Year
  Sex: Female

DRUGS (5)
  1. ALLI [Suspect]
     Indication: WEIGHT LOSS DIET
     Dates: start: 20080225, end: 20080225
  2. PROPRANOLOL [Concomitant]
  3. VERAPAMIL [Concomitant]
  4. CYCLOBENZAPRINE HCL [Concomitant]
  5. PRAVASTATIN [Concomitant]

REACTIONS (1)
  - PALPITATIONS [None]
